FAERS Safety Report 21748252 (Version 2)
Quarter: 2023Q1

REPORT INFORMATION
  Report Type: 
  Country: US (occurrence: US)
  Receive Date: 20221219
  Receipt Date: 20230124
  Transmission Date: 20230417
  Serious: Yes (Hospitalization)
  Sender: FDA-Public Use
  Company Number: US-MannKind Corporation-2022MK000421

PATIENT
  Age: 45 Year
  Sex: Male

DRUGS (4)
  1. AFREZZA [Suspect]
     Active Substance: INSULIN HUMAN
     Indication: Product used for unknown indication
     Dosage: 12 UNITS WITH MEALS
     Dates: start: 20221123
  2. AFREZZA [Suspect]
     Active Substance: INSULIN HUMAN
     Dosage: 12 UNITS WITH MEALS AND 4X2010;8 UNITS CORRECTION
     Dates: start: 20221110, end: 20221123
  3. TRESIBA [Concomitant]
     Active Substance: INSULIN DEGLUDEC
     Indication: Product used for unknown indication
  4. LYUMJEV [Concomitant]
     Active Substance: INSULIN LISPRO-AABC
     Indication: Product used for unknown indication
     Dosage: OMNIPOD PUMP

REACTIONS (2)
  - Leg amputation [Recovered/Resolved]
  - Blood glucose increased [Unknown]

NARRATIVE: CASE EVENT DATE: 20221130
